FAERS Safety Report 20226000 (Version 1)
Quarter: 2021Q4

REPORT INFORMATION
  Report Type: Spontaneous
  Country: GB (occurrence: GB)
  Receive Date: 20211224
  Receipt Date: 20211224
  Transmission Date: 20220303
  Serious: Yes (Life-Threatening)
  Sender: FDA-Public Use
  Company Number: None

PATIENT
  Age: 56 Year
  Sex: Female

DRUGS (2)
  1. DEXTROAMPHETAMINE [Suspect]
     Active Substance: DEXTROAMPHETAMINE
     Indication: Attention deficit hyperactivity disorder
     Dosage: 30 MILLIGRAM DAILY;
     Route: 048
     Dates: start: 2010
  2. DEXTROAMPHETAMINE [Suspect]
     Active Substance: DEXTROAMPHETAMINE
     Indication: Attention deficit hyperactivity disorder
     Dosage: 60 MILLIGRAM DAILY;

REACTIONS (9)
  - Symptom masked [Unknown]
  - False positive investigation result [Unknown]
  - Pain [Unknown]
  - Influenza like illness [Unknown]
  - Malaise [Unknown]
  - Asthenia [Unknown]
  - Cortisol decreased [Unknown]
  - Cortisol increased [Unknown]
  - Headache [Unknown]
